FAERS Safety Report 20188766 (Version 3)
Quarter: 2022Q1

REPORT INFORMATION
  Report Type: Spontaneous
  Country: CO (occurrence: CO)
  Receive Date: 20211215
  Receipt Date: 20220322
  Transmission Date: 20220423
  Serious: No
  Sender: FDA-Public Use
  Company Number: CO-PFIZER INC-202100963410

PATIENT
  Age: 12 Year
  Sex: Male
  Weight: 45 kg

DRUGS (3)
  1. GENOTROPIN [Suspect]
     Active Substance: SOMATROPIN
     Indication: Body height below normal
     Dosage: 1.6 MG, DAILY
     Route: 058
     Dates: start: 201809
  2. GENOTROPIN [Suspect]
     Active Substance: SOMATROPIN
     Dosage: 1.4 MG
     Route: 058
     Dates: start: 20190608, end: 20210725
  3. GENOTROPIN [Suspect]
     Active Substance: SOMATROPIN
     Dosage: 1.4 MG, DAILY
     Route: 058

REACTIONS (4)
  - Drug dose omission by device [Unknown]
  - Device failure [Unknown]
  - Device operational issue [Unknown]
  - Device information output issue [Unknown]

NARRATIVE: CASE EVENT DATE: 20210725
